FAERS Safety Report 20101217 (Version 2)
Quarter: 2022Q1

REPORT INFORMATION
  Report Type: Report from Study
  Country: HU (occurrence: HU)
  Receive Date: 20211123
  Receipt Date: 20220127
  Transmission Date: 20220423
  Serious: Yes (Other)
  Sender: FDA-Public Use
  Company Number: HU-NOVARTISPH-NVSC2021HU262604

PATIENT
  Age: 74 Year
  Sex: Male

DRUGS (4)
  1. GLYCOPYRRONIUM\INDACATEROL [Suspect]
     Active Substance: GLYCOPYRRONIUM\INDACATEROL
     Indication: Chronic obstructive pulmonary disease
     Dosage: (85/43)
     Route: 065
     Dates: start: 2020
  2. FILGRASTIM [Suspect]
     Active Substance: FILGRASTIM
     Indication: Product used for unknown indication
     Dosage: UNK
     Route: 065
  3. THEOPHYLLINE ANHYDROUS [Concomitant]
     Active Substance: THEOPHYLLINE ANHYDROUS
     Indication: Product used for unknown indication
     Dosage: 2 DOSAGE FORM, QD
     Route: 065
  4. MEDROL [Concomitant]
     Active Substance: METHYLPREDNISOLONE
     Indication: Product used for unknown indication
     Dosage: (FOR 3 DAYS AFTER CHEMOTHERAPY)
     Route: 065

REACTIONS (6)
  - Immunodeficiency [Unknown]
  - Malaise [Unknown]
  - Cough [Unknown]
  - Condition aggravated [Unknown]
  - Feeling abnormal [Unknown]
  - Decreased appetite [Unknown]
